FAERS Safety Report 4752230-7 (Version None)
Quarter: 2005Q3

REPORT INFORMATION
  Report Type: 
  Country: None (occurrence: None)
  Receive Date: 20050822
  Receipt Date: 20050822
  Transmission Date: 20060218
  Serious: Yes (Hospitalization, Other)
  Sender: FDA-Public Use
  Company Number: None

PATIENT
  Age: 66 Year
  Sex: Male
  Weight: 92.8 kg

DRUGS (3)
  1. AMIFOSTINE [Suspect]
     Indication: AMYLOIDOSIS
     Dosage: SEE IMAGE
     Dates: start: 20050508, end: 20050509
  2. MELPHALAN [Suspect]
     Dosage: SEE IMAGE
     Dates: start: 20050509, end: 20050509
  3. COLACE [Concomitant]

REACTIONS (12)
  - ASTHENIA [None]
  - BUNDLE BRANCH BLOCK LEFT [None]
  - CARDIAC AMYLOIDOSIS [None]
  - CHEST PAIN [None]
  - DEHYDRATION [None]
  - FEBRILE NEUTROPENIA [None]
  - INFECTION [None]
  - METABOLIC DISORDER [None]
  - MYOCARDIAL ISCHAEMIA [None]
  - ORTHOSTATIC HYPOTENSION [None]
  - PERIPHERAL SENSORY NEUROPATHY [None]
  - THROMBOCYTOPENIA [None]
